FAERS Safety Report 9844892 (Version 1)
Quarter: 2014Q1

REPORT INFORMATION
  Report Type: Spontaneous
  Country: US (occurrence: None)
  Receive Date: 20140123
  Receipt Date: 20140123
  Transmission Date: 20141002
  Serious: Yes (Other)
  Sender: FDA-Public Use
  Company Number: None

PATIENT
  Age: 53 Year
  Sex: Female
  Weight: 104.33 kg

DRUGS (1)
  1. LEVOFLOXACIN [Suspect]

REACTIONS (7)
  - Pain in extremity [None]
  - Pain in extremity [None]
  - Chills [None]
  - Headache [None]
  - Muscular weakness [None]
  - Sensation of heaviness [None]
  - Tendon pain [None]
